FAERS Safety Report 16858266 (Version 1)
Quarter: 2019Q3

REPORT INFORMATION
  Report Type: Spontaneous
  Country: JP (occurrence: JP)
  Receive Date: 20190926
  Receipt Date: 20190926
  Transmission Date: 20191005
  Serious: Yes (Hospitalization, Other)
  Sender: FDA-Public Use
  Company Number: JP-PFIZER INC-2019416039

PATIENT
  Sex: Female

DRUGS (3)
  1. ROXATIDINE ACETATE HYDROCHLORIDE [Suspect]
     Active Substance: ROXATIDINE ACETATE HYDROCHLORIDE
     Dosage: 150 MG, 1X/DAY
     Route: 048
     Dates: start: 20190917, end: 20190918
  2. CELECOX [Suspect]
     Active Substance: CELECOXIB
     Indication: PAIN MANAGEMENT
  3. CELECOX [Suspect]
     Active Substance: CELECOXIB
     Indication: CHONDROCALCINOSIS PYROPHOSPHATE
     Dosage: 200 MG, 1X/DAY
     Route: 048
     Dates: start: 20190917, end: 20190918

REACTIONS (2)
  - Off label use [Unknown]
  - Leukopenia [Not Recovered/Not Resolved]

NARRATIVE: CASE EVENT DATE: 20190917
